FAERS Safety Report 4401948-4 (Version None)
Quarter: 2004Q3

REPORT INFORMATION
  Report Type: 
  Country: None (occurrence: None)
  Receive Date: 20040714
  Receipt Date: 20040625
  Transmission Date: 20050211
  Serious: Yes (Hospitalization)
  Sender: FDA-Public Use
  Company Number: USA040671099

PATIENT
  Age: 75 Year
  Sex: Female

DRUGS (4)
  1. GEMZAR [Suspect]
     Indication: BLADDER CANCER
  2. CISPLATIN [Concomitant]
  3. MAGNESIUM [Concomitant]
  4. POTASSIUM [Concomitant]

REACTIONS (3)
  - COLONIC OBSTRUCTION [None]
  - DIARRHOEA [None]
  - TREATMENT NONCOMPLIANCE [None]
